FAERS Safety Report 4741921-X (Version None)
Quarter: 2005Q3

REPORT INFORMATION
  Report Type: 
  Country: None (occurrence: None)
  Receive Date: 20050801
  Receipt Date: 20050131
  Transmission Date: 20060218
  Serious: Yes (Life-Threatening, Hospitalization)
  Sender: FDA-Public Use
  Company Number: 212142

PATIENT
  Age: 59 Year
  Sex: Female
  Weight: 49.4 kg

DRUGS (3)
  1. HERCEPTIN [Suspect]
     Indication: BREAST CANCER METASTATIC
     Dosage: 100 MG, INTRAVENOUS
     Route: 042
     Dates: start: 20041203, end: 20050114
  2. NAVELBINE (VINORELEBINE) [Concomitant]
  3. HYDROMORPHONE (HYDROMORPHONE HYDROCHLORIDE) [Concomitant]

REACTIONS (1)
  - CARDIAC FAILURE CONGESTIVE [None]
